FAERS Safety Report 24369735 (Version 1)
Quarter: 2024Q3

REPORT INFORMATION
  Report Type: Report from Study
  Country: US (occurrence: US)
  Receive Date: 20240927
  Receipt Date: 20240927
  Transmission Date: 20241017
  Serious: No
  Sender: ROCHE
  Company Number: US-ROCHE-3505395

PATIENT
  Age: 76 Year
  Sex: Female
  Weight: 72.57 kg

DRUGS (6)
  1. LUCENTIS [Suspect]
     Active Substance: RANIBIZUMAB
     Indication: Aneurysm
     Dosage: ANTICIPATED DATE OF TREATMENT: 15/AUG/2023
     Route: 050
  2. LUCENTIS [Suspect]
     Active Substance: RANIBIZUMAB
     Indication: Type 1 diabetes mellitus
  3. LUCENTIS [Suspect]
     Active Substance: RANIBIZUMAB
     Indication: Diabetic retinopathy
  4. LUCENTIS [Suspect]
     Active Substance: RANIBIZUMAB
     Indication: Macular oedema
  5. XOLAIR [Suspect]
     Active Substance: OMALIZUMAB
     Indication: Urticaria
     Dosage: ONE IN EACH ARM
     Route: 065
     Dates: start: 2021
  6. XOLAIR [Suspect]
     Active Substance: OMALIZUMAB

REACTIONS (9)
  - Pain [Not Recovered/Not Resolved]
  - Urinary tract infection [Not Recovered/Not Resolved]
  - COVID-19 [Unknown]
  - Fall [Unknown]
  - Upper limb fracture [Unknown]
  - Thrombosis [Unknown]
  - Weight decreased [Unknown]
  - Visual impairment [Unknown]
  - Off label use [Unknown]
